FAERS Safety Report 12389983 (Version 3)
Quarter: 2018Q3

REPORT INFORMATION
  Report Type: Spontaneous
  Country: GB (occurrence: GB)
  Receive Date: 20160520
  Receipt Date: 20180727
  Transmission Date: 20181010
  Serious: Yes (Hospitalization, Other)
  Sender: FDA-Public Use
  Company Number: GB-TEVA-659894ACC

PATIENT
  Age: 59 Year
  Sex: Female
  Weight: 53 kg

DRUGS (5)
  1. BETMIGA [Interacting]
     Active Substance: MIRABEGRON
     Indication: HYPERTONIC BLADDER
     Dosage: 50 MILLIGRAM DAILY;
     Route: 048
     Dates: start: 20140502, end: 20140930
  2. LEVOTHYROXINE. [Interacting]
     Active Substance: LEVOTHYROXINE
     Indication: HYPOTHYROIDISM
     Dosage: 75 MICROGRAM DAILY;
     Route: 048
     Dates: start: 2006
  3. AMLODIPINE [Interacting]
     Active Substance: AMLODIPINE BESYLATE
     Indication: HYPERTENSION
  4. BETMIGA [Interacting]
     Active Substance: MIRABEGRON
     Indication: POLLAKIURIA
  5. AMLODIPINE [Suspect]
     Active Substance: AMLODIPINE BESYLATE
     Indication: BLOOD PRESSURE MEASUREMENT
     Dosage: 5 MILLIGRAM DAILY; UNK, UNKNOWN FREQ.
     Route: 048
     Dates: start: 2013, end: 20151209

REACTIONS (40)
  - Diarrhoea [Unknown]
  - Abdominal discomfort [Unknown]
  - Muscle tightness [Unknown]
  - Myocardial infarction [Not Recovered/Not Resolved]
  - Suicidal ideation [Unknown]
  - Muscle atrophy [Unknown]
  - Pain [Unknown]
  - Lip disorder [Unknown]
  - Gait disturbance [Unknown]
  - Urinary tract infection [Unknown]
  - Drug interaction [Unknown]
  - Weight decreased [Unknown]
  - Diarrhoea [Not Recovered/Not Resolved]
  - Palpitations [Unknown]
  - Alopecia [Unknown]
  - Feeling drunk [Unknown]
  - Balance disorder [Not Recovered/Not Resolved]
  - Angiopathy [Unknown]
  - Urinary retention [Unknown]
  - Malaise [Unknown]
  - Amnesia [Unknown]
  - Muscular weakness [Unknown]
  - Dysuria [Unknown]
  - Loss of consciousness [Unknown]
  - Impaired work ability [Unknown]
  - Dyspepsia [Unknown]
  - Gait disturbance [Not Recovered/Not Resolved]
  - Vomiting [Not Recovered/Not Resolved]
  - Fall [Unknown]
  - Vomiting [Unknown]
  - Eating disorder [Unknown]
  - Kidney infection [Unknown]
  - Paraesthesia [Unknown]
  - Dizziness [Unknown]
  - Cardiac disorder [Unknown]
  - Liver disorder [Unknown]
  - Scleral discolouration [Unknown]
  - Irritable bowel syndrome [Unknown]
  - Muscular weakness [Not Recovered/Not Resolved]
  - General physical health deterioration [Unknown]

NARRATIVE: CASE EVENT DATE: 20150907
